FAERS Safety Report 19782402 (Version 1)
Quarter: 2021Q3

REPORT INFORMATION
  Report Type: Report from Study
  Country: None (occurrence: IL)
  Receive Date: 20210902
  Receipt Date: 20210902
  Transmission Date: 20211014
  Serious: Yes (Death)
  Sender: FDA-Public Use
  Company Number: IL-ABBVIE-21K-082-4065794-00

PATIENT
  Age: 72 Year
  Sex: Male

DRUGS (2)
  1. DUODOPA [Suspect]
     Active Substance: CARBIDOPA\LEVODOPA
  2. DUODOPA [Suspect]
     Active Substance: CARBIDOPA\LEVODOPA
     Indication: PARKINSON^S DISEASE
     Dosage: MORNING DOSAGE(ML)  10.0, CONTINUOUS DOSAGE (ML/H)  2.0, EXTRA DOSAGE (ML)  1.0
     Route: 050
     Dates: start: 20210624, end: 20210901

REACTIONS (1)
  - Death [Fatal]

NARRATIVE: CASE EVENT DATE: 20210901
